FAERS Safety Report 14240018 (Version 1)
Quarter: 2017Q4

REPORT INFORMATION
  Report Type: Spontaneous
  Country: US (occurrence: US)
  Receive Date: 20171128
  Receipt Date: 20171128
  Transmission Date: 20180321
  Serious: Yes (Disabling)
  Sender: FDA-Public Use
  Company Number: None

PATIENT
  Sex: Female
  Weight: 63 kg

DRUGS (5)
  1. NATURE MADE VITAMIN C [Concomitant]
  2. ESCITALOPRAM [Suspect]
     Active Substance: ESCITALOPRAM OXALATE
     Indication: DEPRESSION
     Dosage: ?          QUANTITY:30 TABLET(S);?
     Route: 048
     Dates: start: 20151115, end: 20170315
  3. PRENATAL CAPSULES [Concomitant]
  4. CALCIUM [Concomitant]
     Active Substance: CALCIUM
  5. IRON [Concomitant]
     Active Substance: IRON

REACTIONS (3)
  - Hyperhidrosis [None]
  - Pyrexia [None]
  - Hallucination, auditory [None]

NARRATIVE: CASE EVENT DATE: 20160708
